FAERS Safety Report 12836142 (Version 1)
Quarter: 2016Q4

REPORT INFORMATION
  Report Type: Spontaneous
  Country: US (occurrence: US)
  Receive Date: 20161008
  Receipt Date: 20161008
  Transmission Date: 20170207
  Serious: Yes (Hospitalization)
  Sender: FDA-Public Use
  Company Number: None

PATIENT
  Age: 53 Year
  Sex: Male
  Weight: 77.2 kg

DRUGS (1)
  1. THIOTEPA. [Suspect]
     Active Substance: THIOTEPA
     Dates: end: 20160902

REACTIONS (4)
  - Balance disorder [None]
  - Asthenia [None]
  - Stem cell transplant [None]
  - Gait disturbance [None]

NARRATIVE: CASE EVENT DATE: 20160929
